FAERS Safety Report 25709672 (Version 1)
Quarter: 2025Q3

REPORT INFORMATION
  Report Type: Spontaneous
  Country: CA (occurrence: None)
  Receive Date: 20250821
  Receipt Date: 20250821
  Transmission Date: 20251021
  Serious: Yes (Other)
  Sender: ORION
  Company Number: CA-PFIZER INC-202500166089

PATIENT
  Age: 48 Year
  Sex: Female

DRUGS (9)
  1. METHOTREXATE [Suspect]
     Active Substance: METHOTREXATE
     Indication: Rheumatoid arthritis
  2. ARAVA [Suspect]
     Active Substance: LEFLUNOMIDE
     Indication: Product used for unknown indication
  3. HYDROXYCHLOROQUINE [Suspect]
     Active Substance: HYDROXYCHLOROQUINE
     Indication: Product used for unknown indication
  4. ACTEMRA [Concomitant]
     Active Substance: TOCILIZUMAB
  5. PREDNISONE [Concomitant]
     Active Substance: PREDNISONE
  6. RINVOQ [Concomitant]
     Active Substance: UPADACITINIB
  7. SIMPONI [Concomitant]
     Active Substance: GOLIMUMAB
  8. SULFASALAZINE [Concomitant]
     Active Substance: SULFASALAZINE
  9. XELJANZ [Concomitant]
     Active Substance: TOFACITINIB CITRATE

REACTIONS (4)
  - Drug ineffective [Unknown]
  - Heavy menstrual bleeding [Unknown]
  - Knee arthroplasty [Unknown]
  - Liver disorder [Unknown]
